FAERS Safety Report 15425805 (Version 1)
Quarter: 2018Q3

REPORT INFORMATION
  Report Type: Other
  Country: ES (occurrence: ES)
  Receive Date: 20180925
  Receipt Date: 20180925
  Transmission Date: 20181010
  Serious: Yes (Other)
  Sender: FDA-Public Use
  Company Number: ES-ALEXION PHARMACEUTICALS INC.-A201812324

PATIENT
  Age: 12 Year
  Sex: Female
  Weight: 36 kg

DRUGS (8)
  1. SOLIRIS [Suspect]
     Active Substance: ECULIZUMAB
     Dosage: 900 MG, UNK
  2. LEVETIRACETAM. [Concomitant]
     Active Substance: LEVETIRACETAM
     Indication: PRODUCT USED FOR UNKNOWN INDICATION
     Dosage: 5 ML, UNK
     Route: 048
     Dates: start: 20170901
  3. URSOBILANE [Concomitant]
     Indication: PRODUCT USED FOR UNKNOWN INDICATION
     Dosage: 1?1?1
     Route: 048
     Dates: start: 20170901
  4. VORICONAZOL [Concomitant]
     Active Substance: VORICONAZOLE
     Indication: PRODUCT USED FOR UNKNOWN INDICATION
     Dosage: 6 ML, UNK
     Route: 048
     Dates: start: 20170901
  5. CIPROFLOXACINO                     /00697202/ [Concomitant]
     Indication: PRODUCT USED FOR UNKNOWN INDICATION
     Dosage: 2,5 ML, QD
     Route: 048
     Dates: start: 20170901
  6. SOLIRIS [Suspect]
     Active Substance: ECULIZUMAB
     Indication: PRODUCT USED FOR UNKNOWN INDICATION
     Dosage: 600 MG, UNK
     Route: 042
     Dates: start: 20170901, end: 20171102
  7. RITUXIMAB. [Suspect]
     Active Substance: RITUXIMAB
     Indication: PRODUCT USED FOR UNKNOWN INDICATION
     Dosage: UNK
     Route: 042
     Dates: start: 20171012, end: 20171102
  8. SEPTRIN BALSAMICO [Concomitant]
     Indication: PRODUCT USED FOR UNKNOWN INDICATION
     Dosage: 9 ML, UNK
     Route: 048
     Dates: start: 20170901

REACTIONS (4)
  - Fungal skin infection [Unknown]
  - Respiratory tract infection fungal [Unknown]
  - BK polyomavirus test [Recovered/Resolved]
  - Roseolovirus test positive [Recovered/Resolved]

NARRATIVE: CASE EVENT DATE: 20171102
